FAERS Safety Report 9689574 (Version 1)
Quarter: 2013Q4

REPORT INFORMATION
  Report Type: Report from Study
  Country: US (occurrence: US)
  Receive Date: 20131115
  Receipt Date: 20131115
  Transmission Date: 20140711
  Serious: Yes (Other)
  Sender: FDA-Public Use
  Company Number: US-ROCHE-1299329

PATIENT
  Sex: Male
  Weight: 72.19 kg

DRUGS (4)
  1. NUTROPIN [Suspect]
     Indication: HYPOPITUITARISM
     Route: 058
  2. ANDROGEL [Concomitant]
     Dosage: 50MG/5MG
     Route: 062
     Dates: start: 20120419
  3. CORTEF [Concomitant]
     Dosage: 10 MG (1 1/2 TABS)
     Route: 048
     Dates: start: 20111214
  4. SYNTHROID [Concomitant]
     Indication: HYPOTHYROIDISM
     Route: 048
     Dates: start: 20120817

REACTIONS (5)
  - Pituitary tumour [Unknown]
  - Fatigue [Unknown]
  - Blood thyroid stimulating hormone decreased [Unknown]
  - Eye movement disorder [Unknown]
  - Hypoglycaemia [Unknown]
